FAERS Safety Report 9994973 (Version 1)
Quarter: 2014Q1

REPORT INFORMATION
  Report Type: Spontaneous
  Country: IT (occurrence: None)
  Receive Date: 20140306
  Receipt Date: 20140306
  Transmission Date: 20141002
  Serious: Yes (Other)
  Sender: FDA-Public Use
  Company Number: 2208991

PATIENT
  Age: 44 Year
  Sex: Female
  Weight: 72 kg

DRUGS (7)
  1. (OXALIPLATIN) [Suspect]
     Indication: COLON CANCER
     Route: 042
  2. TRIMETON /00072502/ [Concomitant]
  3. RANIDIL [Concomitant]
  4. ALOXI [Concomitant]
  5. DEXAMETHASONE [Concomitant]
  6. MAGNESIUM SULFATE [Concomitant]
  7. CAPECITABINE [Concomitant]

REACTIONS (3)
  - Laryngospasm [None]
  - Oxygen saturation decreased [None]
  - Hypotension [None]
